FAERS Safety Report 23576720 (Version 1)
Quarter: 2024Q1

REPORT INFORMATION
  Report Type: Spontaneous
  Country: US (occurrence: US)
  Receive Date: 20240228
  Receipt Date: 20240228
  Transmission Date: 20240409
  Serious: Yes (Hospitalization)
  Sender: FDA-Public Use
  Company Number: US-PFIZER INC-202300450771

PATIENT
  Age: 86 Year
  Sex: Female

DRUGS (1)
  1. XELJANZ [Suspect]
     Active Substance: TOFACITINIB CITRATE
     Dosage: DAILY (TAKE 90 TABLET(S) EVERY DAY BY ORAL ROUTE AS DIRECTED FOR 90 DAYS)
     Route: 048

REACTIONS (4)
  - Pneumonia [Unknown]
  - Pleurisy [Unknown]
  - Fall [Unknown]
  - Product prescribing error [Unknown]
